FAERS Safety Report 8880337 (Version 1)
Quarter: 2012Q4

REPORT INFORMATION
  Report Type: 
  Country: US (occurrence: US)
  Receive Date: 20121101
  Receipt Date: 20121101
  Transmission Date: 20130627
  Serious: Yes (Other)
  Sender: FDA-Public Use
  Company Number: US-PFIZER INC-2012265333

PATIENT
  Age: 32 Year
  Sex: Male
  Weight: 113.38 kg

DRUGS (1)
  1. VIAGRA [Suspect]
     Dosage: 200 mg, (two tablets of 100mg together)
     Dates: start: 20121023

REACTIONS (3)
  - Incorrect dose administered [Unknown]
  - Penile pain [Unknown]
  - Penis disorder [Unknown]
